FAERS Safety Report 6408247-X (Version None)
Quarter: 2009Q4

REPORT INFORMATION
  Report Type: 
  Country: None (occurrence: None)
  Receive Date: 20091021
  Receipt Date: 20091009
  Transmission Date: 20100525
  Serious: Yes (Hospitalization)
  Sender: FDA-Public Use
  Company Number: FR-PFIZER INC-2009280782

PATIENT
  Age: 51 Year

DRUGS (1)
  1. SALAZOPYRIN [Suspect]
     Indication: SERONEGATIVE ARTHRITIS
     Dosage: 2 G, 1X/DAY
     Route: 048
     Dates: start: 20090727, end: 20090821

REACTIONS (1)
  - DRUG RASH WITH EOSINOPHILIA AND SYSTEMIC SYMPTOMS [None]
